FAERS Safety Report 10426478 (Version 1)
Quarter: 2014Q3

REPORT INFORMATION
  Report Type: Spontaneous
  Country: US (occurrence: None)
  Receive Date: 20140902
  Receipt Date: 20140902
  Transmission Date: 20150326
  Serious: Yes (Disabling)
  Sender: FDA-Public Use
  Company Number: None

PATIENT
  Age: 41 Year
  Sex: Female
  Weight: 54 kg

DRUGS (2)
  1. NEXIUM [Suspect]
     Active Substance: ESOMEPRAZOLE MAGNESIUM
     Indication: GASTROOESOPHAGEAL REFLUX DISEASE
     Dosage: 1 TABLET A DAY, ONCE DAILY, TAKEN BY MOUTH
     Route: 048
     Dates: start: 20140715, end: 20140719
  2. GAVISCON [Concomitant]
     Active Substance: ALUMINUM HYDROXIDE\MAGNESIUM CARBONATE

REACTIONS (7)
  - Eating disorder [None]
  - Candida infection [None]
  - Diarrhoea [None]
  - Renal pain [None]
  - Vulvovaginal mycotic infection [None]
  - Dysgeusia [None]
  - Insomnia [None]

NARRATIVE: CASE EVENT DATE: 20140715
